FAERS Safety Report 7831631-4 (Version None)
Quarter: 2011Q4

REPORT INFORMATION
  Report Type: 
  Country: None (occurrence: None)
  Receive Date: 20111021
  Receipt Date: 20111011
  Transmission Date: 20120403
  Serious: Yes (Other)
  Sender: FDA-Public Use
  Company Number: US-GILEAD-2009-0023079

PATIENT

DRUGS (5)
  1. ACETAMINOPHEN [Concomitant]
     Dates: start: 20090407, end: 20090410
  2. METOCLOPRAMIDE [Concomitant]
     Dates: start: 20090510, end: 20090517
  3. TENOFOVIR DISOPROXIL FUMARATE [Suspect]
     Indication: HIV INFECTION
     Dates: start: 20090407, end: 20090505
  4. SULFAMETHOXYPYRAZINE/PYREMETHAMINE [Concomitant]
     Indication: MALARIA
     Dates: start: 20090407, end: 20090408
  5. QUININE SULFATE [Concomitant]
     Dates: start: 20090510, end: 20090512

REACTIONS (1)
  - ABORTION SPONTANEOUS [None]
